FAERS Safety Report 5953653-0 (Version None)
Quarter: 2008Q4

REPORT INFORMATION
  Report Type: 
  Country: None (occurrence: None)
  Receive Date: 20081114
  Receipt Date: 20081031
  Transmission Date: 20090506
  Serious: Yes (Death)
  Sender: FDA-Public Use
  Company Number: B0545405A

PATIENT
  Age: 26 Year
  Sex: Male

DRUGS (4)
  1. KIVEXA [Suspect]
     Indication: HIV INFECTION
     Route: 048
     Dates: start: 20060424, end: 20060505
  2. KALETRA [Suspect]
     Indication: HIV INFECTION
     Route: 048
     Dates: start: 20060424
  3. TRUVADA [Suspect]
     Indication: HIV INFECTION
     Route: 048
     Dates: start: 20060506
  4. BACTRIM [Concomitant]
     Indication: DRUG USE FOR UNKNOWN INDICATION
     Route: 048

REACTIONS (2)
  - CARDIOVASCULAR DISORDER [None]
  - DRUG RASH WITH EOSINOPHILIA AND SYSTEMIC SYMPTOMS [None]
